FAERS Safety Report 8128695-X (Version None)
Quarter: 2012Q1

REPORT INFORMATION
  Report Type: 
  Country: None (occurrence: None)
  Receive Date: 20120210
  Receipt Date: 20101231
  Transmission Date: 20120608
  Serious: No
  Sender: FDA-Public Use
  Company Number: US-BRISTOL-MYERS SQUIBB COMPANY-15467954

PATIENT
  Age: 62 Year
  Sex: Female

DRUGS (5)
  1. ORENCIA [Suspect]
  2. NEXIUM [Interacting]
  3. NORCO [Concomitant]
     Indication: PAIN
     Dosage: 1 DF = 325 UNIT NOT SPECIFIED
  4. FOLIC ACID [Concomitant]
  5. PLAQUENIL [Concomitant]

REACTIONS (2)
  - ABDOMINAL PAIN UPPER [None]
  - DRUG INTERACTION [None]
